FAERS Safety Report 9056833 (Version 1)
Quarter: 2013Q1

REPORT INFORMATION
  Report Type: Spontaneous
  Country: US (occurrence: US)
  Receive Date: 20130201
  Receipt Date: 20130201
  Transmission Date: 20140127
  Serious: Yes (Hospitalization)
  Sender: FDA-Public Use
  Company Number: US-GLAXOSMITHKLINE-A0903555A

PATIENT
  Sex: Male
  Weight: 114.1 kg

DRUGS (1)
  1. AVANDIA [Suspect]
     Indication: DIABETES MELLITUS

REACTIONS (3)
  - Acute coronary syndrome [Unknown]
  - Cardiac failure congestive [Unknown]
  - Coronary artery disease [Unknown]
